FAERS Safety Report 15745685 (Version 1)
Quarter: 2018Q4

REPORT INFORMATION
  Report Type: Spontaneous
  Country: IT (occurrence: IT)
  Receive Date: 20181220
  Receipt Date: 20181220
  Transmission Date: 20190205
  Serious: Yes (Other)
  Sender: FDA-Public Use
  Company Number: PHHY2018IT187833

PATIENT
  Sex: Female

DRUGS (6)
  1. CYCLOPHOSPHAMIDE. [Suspect]
     Active Substance: CYCLOPHOSPHAMIDE
     Indication: HER-2 POSITIVE BREAST CANCER
     Dosage: 600 MG/M2, Q4W (GIVEN OF DAYS 1 AND 8 EVERY 4 WEEKS FOR THE FINAL THREE CYCLES)
     Route: 065
  2. METHOTREXATE. [Suspect]
     Active Substance: METHOTREXATE
     Indication: HER-2 POSITIVE BREAST CANCER
     Dosage: 40 MG/M2, Q4W (GIVEN OF DAYS 1 AND 8 EVERY 4 WEEKS FOR THE FINAL THREE CYCLES)
     Route: 065
  3. PACLITAXEL. [Suspect]
     Active Substance: PACLITAXEL
     Dosage: 175 MG/M2, Q3W (EVERY 3 WEEKS FOR FOUR CYCLES)
     Route: 042
  4. DOXORUBICIN [Suspect]
     Active Substance: DOXORUBICIN
     Indication: HER-2 POSITIVE BREAST CANCER
     Dosage: 60 MG/M2, Q3W (EVERY 3 WEEKS FOR THREE CYCLES)
     Route: 042
  5. PACLITAXEL. [Suspect]
     Active Substance: PACLITAXEL
     Indication: HER-2 POSITIVE BREAST CANCER
     Dosage: 150 MG/M2, Q3W (EVERY 3 WEEKS FOR THREE CYCLES)
     Route: 042
  6. 5-FLUOROURACIL [Suspect]
     Active Substance: FLUOROURACIL
     Indication: HER-2 POSITIVE BREAST CANCER
     Dosage: 600 MG/M2, Q4W (GIVEN OF DAYS 1 AND 8 EVERY 4 WEEKS FOR THE FINAL THREE CYCLES)
     Route: 065

REACTIONS (2)
  - Product use in unapproved indication [Unknown]
  - Thrombosis [Unknown]
